FAERS Safety Report 10032810 (Version 2)
Quarter: 2014Q2

REPORT INFORMATION
  Report Type: Spontaneous
  Country: US (occurrence: US)
  Receive Date: 20140324
  Receipt Date: 20140530
  Transmission Date: 20141212
  Serious: No
  Sender: FDA-Public Use
  Company Number: US-B.I. PHARMACEUTICALS,INC./RIDGEFIELD-2014-BI-12237BP

PATIENT
  Age: 86 Year
  Sex: Female
  Weight: 54.43 kg

DRUGS (7)
  1. TRADJENTA [Suspect]
     Indication: TYPE 2 DIABETES MELLITUS
     Dosage: 5 MG
     Route: 048
     Dates: start: 20140310, end: 20140311
  2. TRADJENTA [Suspect]
     Indication: BLOOD GLUCOSE INCREASED
  3. SINGULAIR [Concomitant]
     Indication: SEASONAL ALLERGY
     Route: 065
     Dates: start: 201403, end: 201403
  4. UNSPECIFIED STEROID [Concomitant]
     Route: 065
     Dates: start: 201403, end: 201403
  5. PREDNISONE [Concomitant]
     Route: 065
  6. SINGULAR [Concomitant]
     Route: 065
  7. SYNTHROID [Concomitant]
     Dosage: DOSE PER APPLICATION: 0.088 (UNIT NOT REPORTED)
     Route: 065

REACTIONS (1)
  - Swollen tongue [Recovered/Resolved]
